FAERS Safety Report 21588196 (Version 1)
Quarter: 2022Q4

REPORT INFORMATION
  Report Type: Report from Study
  Country: US (occurrence: US)
  Receive Date: 20221114
  Receipt Date: 20221114
  Transmission Date: 20230112
  Serious: No
  Sender: FDA-Public Use
  Company Number: US-ABBVIE-22K-163-4534815-00

PATIENT
  Age: 57 Year
  Sex: Male
  Weight: 101.6 kg

DRUGS (3)
  1. IMBRUVICA [Suspect]
     Active Substance: IBRUTINIB
     Indication: Chronic lymphocytic leukaemia
     Dosage: STRENGTH: 420 MG
     Route: 048
     Dates: start: 20220328
  2. JANSSEN COVID-19 VACCINE [Concomitant]
     Active Substance: AD26.COV2.S
     Indication: COVID-19 immunisation
     Dosage: ONCE
     Route: 030
  3. TAMSULOSIN [Concomitant]
     Active Substance: TAMSULOSIN
     Indication: Supplementation therapy
     Dosage: 0.4 MILLIGRAM

REACTIONS (1)
  - Rash macular [Recovered/Resolved]

NARRATIVE: CASE EVENT DATE: 20220601
